FAERS Safety Report 23068174 (Version 2)
Quarter: 2023Q4

REPORT INFORMATION
  Report Type: Other
  Country: KR (occurrence: None)
  Receive Date: 20231016
  Receipt Date: 20231128
  Transmission Date: 20240109
  Serious: Yes (Hospitalization)
  Sender: FDA-Public Use
  Company Number: KR-ROCHE-3404971

PATIENT
  Age: 80 Year
  Sex: Male
  Weight: 67.6 kg

DRUGS (18)
  1. ADO-TRASTUZUMAB EMTANSINE [Suspect]
     Active Substance: ADO-TRASTUZUMAB EMTANSINE
     Indication: Non-small cell lung cancer
     Route: 042
     Dates: start: 20230809, end: 20230809
  2. ADO-TRASTUZUMAB EMTANSINE [Suspect]
     Active Substance: ADO-TRASTUZUMAB EMTANSINE
     Route: 042
     Dates: start: 20230829, end: 20230829
  3. ADO-TRASTUZUMAB EMTANSINE [Suspect]
     Active Substance: ADO-TRASTUZUMAB EMTANSINE
     Dosage: MOST RECENT DOSE :19/SEP/2023
     Route: 042
     Dates: start: 20230919, end: 20230919
  4. ADO-TRASTUZUMAB EMTANSINE [Suspect]
     Active Substance: ADO-TRASTUZUMAB EMTANSINE
     Route: 042
     Dates: start: 20231010, end: 20231010
  5. FOLATE SODIUM [Concomitant]
     Active Substance: FOLATE SODIUM
     Route: 048
     Dates: start: 20230120, end: 20230829
  6. NORVASC [Concomitant]
     Active Substance: AMLODIPINE BESYLATE
     Route: 048
     Dates: end: 20230829
  7. NEBISTOL [Concomitant]
     Route: 048
     Dates: end: 20230829
  8. KANARB [Concomitant]
     Route: 048
     Dates: end: 20230829
  9. CRESNON [Concomitant]
     Route: 048
     Dates: end: 20230829
  10. EZET [Concomitant]
     Route: 048
  11. FEBUXOSTAT [Concomitant]
     Active Substance: FEBUXOSTAT
     Route: 048
     Dates: start: 20230111, end: 20230829
  12. HARNAL [Concomitant]
     Active Substance: TAMSULOSIN HYDROCHLORIDE
     Route: 048
     Dates: start: 20230111, end: 20230829
  13. MOSAPRIDE CITRATE [Concomitant]
     Active Substance: MOSAPRIDE CITRATE
     Route: 048
     Dates: start: 20230111, end: 20230829
  14. GASTER [Concomitant]
     Active Substance: FAMOTIDINE
     Route: 048
     Dates: start: 20230803, end: 20230829
  15. CHLORPHENIRAMINE MALEATE [Concomitant]
     Active Substance: CHLORPHENIRAMINE MALEATE
     Dosage: DOSE: 4 MG/2 ML, 1 AMP
     Route: 042
     Dates: start: 20230803, end: 20230829
  16. DEXAMETHASONE [Concomitant]
     Active Substance: DEXAMETHASONE
     Route: 042
     Dates: start: 20230803, end: 20230829
  17. FEROBA YOU SR [Concomitant]
     Dosage: FERROUS SULFATE 256MG, FE2+: 80MG
     Route: 048
     Dates: start: 20230317, end: 20230829
  18. ZOLPIDEM TARTRATE [Concomitant]
     Active Substance: ZOLPIDEM TARTRATE
     Route: 048
     Dates: start: 20230829, end: 20230829

REACTIONS (2)
  - Pleural effusion [Recovered/Resolved]
  - Cough [Recovering/Resolving]

NARRATIVE: CASE EVENT DATE: 20230811
